FAERS Safety Report 6186757-0 (Version None)
Quarter: 2009Q2

REPORT INFORMATION
  Report Type: 
  Country: None (occurrence: None)
  Receive Date: 20090512
  Receipt Date: 20090504
  Transmission Date: 20091009
  Serious: Yes (Life-Threatening, Hospitalization)
  Sender: FDA-Public Use
  Company Number: DE-ROCHE-629149

PATIENT
  Sex: Male
  Weight: 87.5 kg

DRUGS (6)
  1. XELODA [Suspect]
     Route: 048
     Dates: start: 20081117, end: 20081222
  2. RAMIPRIL [Concomitant]
     Indication: HYPERTENSION
     Dosage: RAMIPRIL HEXAL COMP 5MG/25MG (5MG RAMIPRIL/25MG HYDROCHLOROTHIAZIDE); RECEIVED FOR YEARS
     Route: 048
  3. BISOPROLOL [Concomitant]
     Indication: HYPERTENSION
     Dosage: BISO HEXAL; RECEIVED FOR YEARS
     Route: 048
  4. FINASTERIDE [Concomitant]
     Dosage: RECEIVED FOR YEARS
     Route: 048
  5. FRAGMIN P FORTE [Concomitant]
     Indication: ATRIAL FIBRILLATION
     Route: 058
     Dates: start: 20081010, end: 20081222
  6. MARCUMAR [Concomitant]

REACTIONS (1)
  - VENTRICULAR FIBRILLATION [None]
